FAERS Safety Report 12477364 (Version 1)
Quarter: 2016Q2

REPORT INFORMATION
  Report Type: Spontaneous
  Country: US (occurrence: US)
  Receive Date: 20160617
  Receipt Date: 20160617
  Transmission Date: 20160815
  Serious: Yes (Other)
  Sender: FDA-Public Use
  Company Number: US-TEVA-667181USA

PATIENT
  Age: 75 Year
  Sex: Male

DRUGS (1)
  1. FOSINOPRIL [Suspect]
     Active Substance: FOSINOPRIL
     Indication: HYPERTENSION
     Route: 065

REACTIONS (3)
  - Insomnia [Unknown]
  - Hypoxia [Unknown]
  - Heart rate increased [Unknown]
